FAERS Safety Report 6252502-3 (Version None)
Quarter: 2009Q3

REPORT INFORMATION
  Report Type: 
  Country: None (occurrence: None)
  Receive Date: 20090701
  Receipt Date: 20090623
  Transmission Date: 20100115
  Serious: Yes (Hospitalization)
  Sender: FDA-Public Use
  Company Number: GB-PFIZER INC-2009230657

PATIENT
  Age: 68 Year

DRUGS (11)
  1. AMLODIPINE BESILATE [Suspect]
     Indication: HYPERTENSION
     Dosage: 10 MG, UNK
     Dates: start: 20090422
  2. MOXONIDINE [Suspect]
     Indication: HYPERTENSION
     Dosage: 200 UG, UNK
     Dates: start: 20090505, end: 20090518
  3. ATORVASTATIN CALCIUM [Concomitant]
     Dosage: 10 MG, DAILY
     Route: 048
  4. BISOPROLOL [Concomitant]
     Dosage: 10 MG, DAILY
     Route: 048
  5. CETIRIZINE [Concomitant]
     Dosage: 10 MG, DAILY
  6. CITALOPRAM [Concomitant]
     Dosage: 40 MG, DAILY
     Route: 048
  7. CLOPIDOGREL [Concomitant]
     Dosage: 75 MG, DAILY
     Route: 048
  8. IRBESARTAN [Concomitant]
     Dosage: 300 MG, DAILY
     Route: 048
  9. LACTULOSE [Concomitant]
     Dosage: UNK
     Route: 048
  10. OMEPRAZOLE [Concomitant]
     Dosage: 20 MG, DAILY
     Route: 048
  11. PARACETAMOL [Concomitant]
     Dosage: 1 G, 4X/DAY
     Route: 048

REACTIONS (3)
  - CONVULSION [None]
  - GOUT [None]
  - MUSCLE SPASMS [None]
